FAERS Safety Report 17069844 (Version 2)
Quarter: 2019Q4

REPORT INFORMATION
  Report Type: Report from Study
  Country: None (occurrence: BR)
  Receive Date: 20191125
  Receipt Date: 20191211
  Transmission Date: 20200122
  Serious: Yes (Other)
  Sender: FDA-Public Use
  Company Number: BR-ABBVIE-19K-020-2999676-00

PATIENT
  Age: 31 Year
  Sex: Male
  Weight: 52 kg

DRUGS (5)
  1. HUMIRA [Suspect]
     Active Substance: ADALIMUMAB
     Indication: CROHN^S DISEASE
     Dosage: LOADING DOSE WEEK 0
     Route: 058
     Dates: start: 20191101, end: 20191101
  2. HUMIRA [Suspect]
     Active Substance: ADALIMUMAB
     Dosage: LOADING DOSE, WEEK 2
     Route: 058
     Dates: start: 20191108, end: 20191108
  3. CAFFEINE\CHLORPHENAMINE MALEATE\DIPYRONE [Suspect]
     Active Substance: CAFFEINE\CHLORPHENAMINE MALEATE\DIPYRONE
     Indication: INFLUENZA
     Route: 065
  4. HUMIRA [Suspect]
     Active Substance: ADALIMUMAB
     Route: 058
     Dates: start: 201911
  5. APRACUR [ASCORBIC ACID\CHLORPHENIRAMINE MALEATE\ METAMIZOLE SODIUM] [Suspect]
     Active Substance: ASCORBIC ACID\CHLORPHENIRAMINE MALEATE\ METAMIZOLE SODIUM
     Indication: INFLUENZA
     Route: 065

REACTIONS (7)
  - Adverse drug reaction [Unknown]
  - Haemorrhage [Unknown]
  - Catarrh [Unknown]
  - Helminthic infection [Unknown]
  - Haemorrhage [Unknown]
  - Bacterial infection [Unknown]
  - Influenza [Recovering/Resolving]

NARRATIVE: CASE EVENT DATE: 201911
